FAERS Safety Report 11293426 (Version 1)
Quarter: 2015Q3

REPORT INFORMATION
  Report Type: Spontaneous
  Country: TR (occurrence: TR)
  Receive Date: 20150722
  Receipt Date: 20150722
  Transmission Date: 20151125
  Serious: Yes (Hospitalization)
  Sender: FDA-Public Use
  Company Number: PHHY2015TR086061

PATIENT
  Age: 45 Year
  Sex: Female

DRUGS (2)
  1. CLINDAMYCIN [Suspect]
     Active Substance: CLINDAMYCIN\CLINDAMYCIN PHOSPHATE
     Indication: NOCARDIOSIS
     Dosage: 1800 MG, QD
     Route: 065
  2. CEFTIZOXIME [Suspect]
     Active Substance: CEFTIZOXIME
     Indication: NOCARDIOSIS
     Dosage: 6 MG, QD
     Route: 065

REACTIONS (2)
  - Drug effect incomplete [Unknown]
  - Skin lesion [Unknown]
